FAERS Safety Report 5343850-X (Version None)
Quarter: 2007Q2

REPORT INFORMATION
  Report Type: 
  Country: None (occurrence: None)
  Receive Date: 20070531
  Receipt Date: 20070531
  Transmission Date: 20071010
  Serious: Yes (Hospitalization)
  Sender: FDA-Public Use
  Company Number: None

PATIENT
  Age: 82 Year
  Sex: Female

DRUGS (14)
  1. DIGOXIN [Suspect]
     Indication: ATRIAL FIBRILLATION
     Dosage: 250 MG QD  (DURATION: 2 WEEKS PTA  - 9/6/2006)
     Dates: end: 20060906
  2. ZITHROMAX [Concomitant]
  3. COUMADIN [Concomitant]
  4. ASPIRIN [Concomitant]
  5. LIPITOR [Concomitant]
  6. FLOVENT [Concomitant]
  7. MIACALCIN [Concomitant]
  8. ACTONEL [Concomitant]
  9. NEPHROCAPS [Concomitant]
  10. CITRIC ACID [Concomitant]
  11. COZAAR [Concomitant]
  12. NORVASC [Concomitant]
  13. ZOLOFT [Concomitant]
  14. ATENOLOL [Concomitant]

REACTIONS (4)
  - CARDIAC FAILURE CONGESTIVE [None]
  - DEHYDRATION [None]
  - GASTROENTERITIS [None]
  - THERAPEUTIC AGENT TOXICITY [None]
